FAERS Safety Report 16381286 (Version 4)
Quarter: 2019Q4

REPORT INFORMATION
  Report Type: Spontaneous
  Country: US (occurrence: US)
  Receive Date: 20190603
  Receipt Date: 20191010
  Transmission Date: 20200122
  Serious: Yes (Other)
  Sender: FDA-Public Use
  Company Number: US-ASTRAZENECA-2018SF00486

PATIENT
  Age: 67 Year
  Sex: Female
  Weight: 93 kg

DRUGS (29)
  1. PANTOPRAZOLE [Suspect]
     Active Substance: PANTOPRAZOLE
     Indication: GASTROOESOPHAGEAL REFLUX DISEASE
     Dosage: 40 MG
     Route: 065
     Dates: start: 2016, end: 2018
  2. LEVOCETIRIZINE [Concomitant]
     Active Substance: LEVOCETIRIZINE
  3. CELEBREX [Concomitant]
     Active Substance: CELECOXIB
  4. DIOVAN [Concomitant]
     Active Substance: VALSARTAN
  5. TIZANIDINE. [Concomitant]
     Active Substance: TIZANIDINE
  6. LOVASTATIN. [Concomitant]
     Active Substance: LOVASTATIN
  7. TERBINAFINE. [Concomitant]
     Active Substance: TERBINAFINE
  8. IBUPROFEN. [Concomitant]
     Active Substance: IBUPROFEN
  9. PROMETHAZINE [Concomitant]
     Active Substance: PROMETHAZINE HYDROCHLORIDE
  10. AMOXICILLIN. [Concomitant]
     Active Substance: AMOXICILLIN
  11. PREDNISONE. [Concomitant]
     Active Substance: PREDNISONE
  12. GABAPENTIN. [Concomitant]
     Active Substance: GABAPENTIN
  13. NEXIUM [Suspect]
     Active Substance: ESOMEPRAZOLE MAGNESIUM
     Indication: GASTROOESOPHAGEAL REFLUX DISEASE
     Dosage: 40 MG
     Route: 048
     Dates: start: 2010, end: 2014
  14. PANTOPRAZOLE [Suspect]
     Active Substance: PANTOPRAZOLE
     Indication: GASTROOESOPHAGEAL REFLUX DISEASE
     Route: 065
  15. CIMETIDINE [Concomitant]
     Active Substance: CIMETIDINE
  16. FISH OIL [Concomitant]
     Active Substance: FISH OIL
  17. DIFLUCAN [Concomitant]
     Active Substance: FLUCONAZOLE
  18. CEFTIN [Concomitant]
     Active Substance: CEFUROXIME AXETIL
  19. VALSARTAN. [Concomitant]
     Active Substance: VALSARTAN
  20. LEVAQUIN [Concomitant]
     Active Substance: LEVOFLOXACIN
  21. MELOXICAM. [Concomitant]
     Active Substance: MELOXICAM
  22. NEXIUM [Suspect]
     Active Substance: ESOMEPRAZOLE MAGNESIUM
     Indication: GASTROOESOPHAGEAL REFLUX DISEASE
     Route: 048
     Dates: start: 2010, end: 2015
  23. FLUCONAZOLE. [Concomitant]
     Active Substance: FLUCONAZOLE
  24. AZITHROMYCIN ANHYDROUS. [Concomitant]
     Active Substance: AZITHROMYCIN ANHYDROUS
  25. ETODOLAC. [Concomitant]
     Active Substance: ETODOLAC
  26. ASPIRIN. [Concomitant]
     Active Substance: ASPIRIN
  27. PREDNISONE. [Concomitant]
     Active Substance: PREDNISONE
  28. METRONIDAZOLE. [Concomitant]
     Active Substance: METRONIDAZOLE
  29. MELOXICAM. [Concomitant]
     Active Substance: MELOXICAM

REACTIONS (2)
  - Acute kidney injury [Not Recovered/Not Resolved]
  - Chronic kidney disease [Not Recovered/Not Resolved]

NARRATIVE: CASE EVENT DATE: 2015
